FAERS Safety Report 8581100-1 (Version None)
Quarter: 2012Q2

REPORT INFORMATION
  Report Type: 
  Country: None (occurrence: None)
  Receive Date: 20120423
  Receipt Date: 20100415
  Transmission Date: 20120825
  Serious: Yes (Hospitalization, Other)
  Sender: FDA-Public Use
  Company Number: PHHY2010US24406

PATIENT
  Age: 31 Year
  Sex: Female

DRUGS (1)
  1. EXJADE [Suspect]
     Indication: SICKLE CELL ANAEMIA
     Dosage: 1000 MG, A DAY, ORAL
     Route: 048
     Dates: start: 20091009

REACTIONS (2)
  - SICKLE CELL ANAEMIA WITH CRISIS [None]
  - WRONG TECHNIQUE IN DRUG USAGE PROCESS [None]
